FAERS Safety Report 12926215 (Version 2)
Quarter: 2016Q4

REPORT INFORMATION
  Report Type: Report from Study
  Country: US (occurrence: US)
  Receive Date: 20161109
  Receipt Date: 20161130
  Transmission Date: 20170207
  Serious: Yes (Death, Hospitalization)
  Sender: FDA-Public Use
  Company Number: US-GILEAD-2016-0242482

PATIENT
  Age: 77 Year
  Sex: Female
  Weight: 72.11 kg

DRUGS (1)
  1. AMBRISENTAN [Suspect]
     Active Substance: AMBRISENTAN
     Indication: PRODUCT USED FOR UNKNOWN INDICATION
     Dosage: 5 MG, QD
     Route: 065
     Dates: start: 20140804

REACTIONS (1)
  - Chronic obstructive pulmonary disease [Fatal]
